FAERS Safety Report 10247208 (Version 3)
Quarter: 2014Q3

REPORT INFORMATION
  Report Type: Spontaneous
  Country: JP (occurrence: None)
  Receive Date: 20140617
  Receipt Date: 20140922
  Transmission Date: 20150326
  Serious: Yes (Other)
  Sender: FDA-Public Use
  Company Number: 2014-JP-0034

PATIENT
  Age: 81 Year
  Sex: Female

DRUGS (1)
  1. FARESTON [Suspect]
     Active Substance: TOREMIFENE CITRATE
     Indication: BREAST CANCER
     Dosage: 4 YEAR 5 MONTH
     Route: 048
     Dates: start: 20080908, end: 20130214

REACTIONS (4)
  - Endometrial hypertrophy [None]
  - Endometrial hyperplasia [None]
  - Endometrial disorder [None]
  - Colon cancer [None]
